FAERS Safety Report 25384748 (Version 2)
Quarter: 2025Q3

REPORT INFORMATION
  Report Type: Spontaneous
  Country: US (occurrence: US)
  Receive Date: 20250602
  Receipt Date: 20250715
  Transmission Date: 20251021
  Serious: Yes (Disabling, Other)
  Sender: REGENERON
  Company Number: US-REGENERON PHARMACEUTICALS, INC.-2025-088528

PATIENT
  Age: 54 Year
  Sex: Male

DRUGS (1)
  1. EYLEA [Suspect]
     Active Substance: AFLIBERCEPT
     Indication: Diabetic retinal oedema
     Dosage: 2 MG, MONTHLY, INTO LEFT EYE, FORMULATION: PFS (GERRESHEIMER)
     Dates: start: 20250522

REACTIONS (4)
  - Blindness unilateral [Not Recovered/Not Resolved]
  - Headache [Recovered/Resolved]
  - Ocular discomfort [Unknown]
  - Eye pain [Unknown]

NARRATIVE: CASE EVENT DATE: 20250522
